FAERS Safety Report 7688348-9 (Version None)
Quarter: 2011Q3

REPORT INFORMATION
  Report Type: 
  Country: None (occurrence: None)
  Receive Date: 20110817
  Receipt Date: 20110805
  Transmission Date: 20111222
  Serious: Yes (Death)
  Sender: FDA-Public Use
  Company Number: PL-SANOFI-AVENTIS-2011SA043754

PATIENT
  Age: 81 Year
  Sex: Male
  Weight: 77 kg

DRUGS (6)
  1. METOPROLOL TARTRATE [Concomitant]
  2. ATORVASTATIN [Concomitant]
  3. DRONEDARONE HCL [Suspect]
     Indication: ATRIAL FIBRILLATION
     Route: 048
     Dates: start: 20110209
  4. DIGOXIN [Concomitant]
  5. TORSEMIDE [Concomitant]
  6. RAMIPRIL [Concomitant]

REACTIONS (1)
  - CARDIAC DEATH [None]
